FAERS Safety Report 7313336-1 (Version None)
Quarter: 2011Q1

REPORT INFORMATION
  Report Type: 
  Country: None (occurrence: None)
  Receive Date: 20110225
  Receipt Date: 20110213
  Transmission Date: 20110831
  Serious: Yes (Hospitalization, Other)
  Sender: FDA-Public Use
  Company Number: CA-ELI_LILLY_AND_COMPANY-CA201102004045

PATIENT
  Age: 86 Year
  Sex: Male

DRUGS (4)
  1. DIGOXIN [Concomitant]
  2. FORTEO [Suspect]
     Indication: OSTEOPOROSIS
     Dosage: 20 UG, DAILY (1/D)
     Route: 058
     Dates: start: 20100721
  3. ASA [Concomitant]
  4. CORTEF [Concomitant]

REACTIONS (2)
  - FALL [None]
  - HIP FRACTURE [None]
